FAERS Safety Report 21186956 (Version 2)
Quarter: 2022Q3

REPORT INFORMATION
  Report Type: Spontaneous
  Country: US (occurrence: US)
  Receive Date: 20220808
  Receipt Date: 20220824
  Transmission Date: 20221027
  Serious: No
  Sender: FDA-Public Use
  Company Number: US-PFIZER INC-202201038086

PATIENT
  Sex: Female

DRUGS (2)
  1. PHENELZINE SULFATE [Suspect]
     Active Substance: PHENELZINE SULFATE
     Indication: Depression
     Dosage: 15 MG ABOUT 2 A DAY (2X/DAY)
  2. PHENELZINE SULFATE [Suspect]
     Active Substance: PHENELZINE SULFATE
     Dosage: 3 A DAY (3X/DAY)

REACTIONS (1)
  - Hypertension [Unknown]
